FAERS Safety Report 23920974 (Version 2)
Quarter: 2024Q3

REPORT INFORMATION
  Report Type: Spontaneous
  Country: JP (occurrence: JP)
  Receive Date: 20240530
  Receipt Date: 20240708
  Transmission Date: 20241016
  Serious: Yes (Hospitalization, Other)
  Sender: FERRING
  Company Number: JP-ferring-EVA202400790FERRINGPH

PATIENT

DRUGS (2)
  1. DESMOPRESSIN ACETATE [Suspect]
     Active Substance: DESMOPRESSIN ACETATE
     Indication: Diabetes insipidus
     Dosage: 90 UG (60 UG IN THE MORNING AND 30 UG IN THE EVENING)
     Route: 048
     Dates: start: 202403
  2. DESMOPRESSIN ACETATE [Suspect]
     Active Substance: DESMOPRESSIN ACETATE
     Dosage: UNK
     Route: 048
     Dates: start: 20171124

REACTIONS (4)
  - Hypopituitarism [Recovering/Resolving]
  - Water intoxication [Recovered/Resolved]
  - Water intoxication [Recovering/Resolving]
  - Wrong technique in product usage process [Not Recovered/Not Resolved]

NARRATIVE: CASE EVENT DATE: 20240101
